FAERS Safety Report 7456310-7 (Version None)
Quarter: 2011Q2

REPORT INFORMATION
  Report Type: 
  Country: None (occurrence: None)
  Receive Date: 20110503
  Receipt Date: 20110120
  Transmission Date: 20111010
  Serious: Yes (Other)
  Sender: FDA-Public Use
  Company Number: US-BAYER-201038079NA

PATIENT
  Age: 31 Year
  Sex: Female
  Weight: 104 kg

DRUGS (6)
  1. ANTIBIOTICS [Concomitant]
  2. YAZ [Suspect]
     Indication: ACNE
     Dosage: UNK
     Dates: start: 20050101, end: 20050101
  3. YASMIN [Suspect]
     Indication: ACNE
     Dosage: UNK
     Dates: start: 20050101, end: 20050101
  4. YAZ [Suspect]
     Indication: CONTRACEPTION
  5. YASMIN [Suspect]
     Indication: CONTRACEPTION
  6. NSAID'S [Concomitant]

REACTIONS (4)
  - CHOLECYSTECTOMY [None]
  - INJURY [None]
  - PAIN [None]
  - CHOLECYSTITIS [None]
